FAERS Safety Report 9886936 (Version 1)
Quarter: 2014Q1

REPORT INFORMATION
  Report Type: Spontaneous
  Country: CH (occurrence: CH)
  Receive Date: 20140211
  Receipt Date: 20140211
  Transmission Date: 20141002
  Serious: Yes (Hospitalization, Other)
  Sender: FDA-Public Use
  Company Number: CH-009507513-1402CHE002979

PATIENT
  Age: 18 Year
  Sex: Male

DRUGS (1)
  1. REMERON SOLTAB [Suspect]
     Dosage: 24 DF AT ONCE
     Route: 048
     Dates: start: 20140105, end: 20140105

REACTIONS (7)
  - Tachycardia [Recovered/Resolved]
  - Suicide attempt [Recovered/Resolved]
  - Muscle contractions involuntary [Recovered/Resolved]
  - Body temperature increased [Recovered/Resolved]
  - Bradycardia [Recovered/Resolved]
  - Tremor [Recovered/Resolved]
  - Intentional overdose [Unknown]
